FAERS Safety Report 13093019 (Version 1)
Quarter: 2017Q1

REPORT INFORMATION
  Report Type: Spontaneous
  Country: DE (occurrence: DE)
  Receive Date: 20170106
  Receipt Date: 20170106
  Transmission Date: 20170428
  Serious: Yes (Death, Hospitalization, Other)
  Sender: FDA-Public Use
  Company Number: DE-JNJFOC-20160911246

PATIENT
  Age: 81 Year
  Sex: Male
  Weight: 79.82 kg

DRUGS (5)
  1. XARELTO [Suspect]
     Active Substance: RIVAROXABAN
     Indication: CEREBROVASCULAR ACCIDENT PROPHYLAXIS
     Route: 048
     Dates: start: 20160324, end: 20160831
  2. RAMIPRIL. [Concomitant]
     Active Substance: RAMIPRIL
     Route: 065
     Dates: start: 20160208, end: 20160831
  3. TORASEMIDE [Concomitant]
     Active Substance: TORSEMIDE
     Route: 065
  4. XARELTO [Suspect]
     Active Substance: RIVAROXABAN
     Indication: ATRIAL FIBRILLATION
     Route: 048
     Dates: start: 20160324, end: 20160831
  5. BISOPROLOL [Concomitant]
     Active Substance: BISOPROLOL
     Route: 065
     Dates: start: 20151120, end: 20160831

REACTIONS (14)
  - Traumatic intracranial haemorrhage [Fatal]
  - Facial bones fracture [Unknown]
  - Pulmonary embolism [Unknown]
  - Arteriosclerosis coronary artery [Unknown]
  - Extradural haematoma [Unknown]
  - Electrolyte imbalance [Unknown]
  - Skin abrasion [Unknown]
  - Cerebral ischaemia [Unknown]
  - Pelvic venous thrombosis [Unknown]
  - Renal vein embolism [Unknown]
  - Anaemia [Unknown]
  - Thrombocytopenia [Unknown]
  - Brain stem haemorrhage [Unknown]
  - Cerebral haematoma [Unknown]

NARRATIVE: CASE EVENT DATE: 20160831
